FAERS Safety Report 11755264 (Version 1)
Quarter: 2015Q4

REPORT INFORMATION
  Report Type: Spontaneous
  Country: US (occurrence: None)
  Receive Date: 20151119
  Receipt Date: 20151119
  Transmission Date: 20160304
  Serious: Yes (Other)
  Sender: FDA-Public Use
  Company Number: US-MDT-ADR-2015-02196

PATIENT
  Age: 64 Year
  Sex: Female

DRUGS (2)
  1. BACLOFEN INTRATHECAL (2000 MCG/ML) [Suspect]
     Active Substance: BACLOFEN
     Indication: MUSCLE SPASTICITY
     Dosage: 399.7 MCG/DAY
  2. FENTANYL INTRATHECAL (125 MCG/ML) [Suspect]
     Active Substance: FENTANYL
     Dosage: 24.98 MCG/DAY

REACTIONS (3)
  - Device breakage [None]
  - Device power source issue [None]
  - Infusion site mass [None]
